FAERS Safety Report 11811296 (Version 1)
Quarter: 2015Q4

REPORT INFORMATION
  Report Type: Spontaneous
  Country: TR (occurrence: TR)
  Receive Date: 20151208
  Receipt Date: 20151208
  Transmission Date: 20160305
  Serious: Yes (Congenital Anomaly, Other)
  Sender: FDA-Public Use
  Company Number: PHHY2015TR159165

PATIENT
  Age: 2 Month
  Sex: Male

DRUGS (1)
  1. CARBAMAZEPINE. [Suspect]
     Active Substance: CARBAMAZEPINE
     Indication: FOETAL EXPOSURE DURING PREGNANCY
     Dosage: MATERNAL DOSE (2 X 400 MG/DAY)
     Route: 064

REACTIONS (12)
  - Arthropathy [Unknown]
  - Congenital bowing of long bones [Unknown]
  - Facial asymmetry [Unknown]
  - Developmental delay [Unknown]
  - Low set ears [Unknown]
  - Foetal exposure during pregnancy [Unknown]
  - Phalangeal agenesis [Unknown]
  - Hypospadias [Unknown]
  - Talipes [Unknown]
  - Low birth weight baby [Unknown]
  - Microcephaly [Unknown]
  - Adactyly [Unknown]
